FAERS Safety Report 14839791 (Version 1)
Quarter: 2018Q2

REPORT INFORMATION
  Report Type: Spontaneous
  Country: FR (occurrence: FR)
  Receive Date: 20180503
  Receipt Date: 20180503
  Transmission Date: 20180711
  Serious: Yes (Hospitalization)
  Sender: FDA-Public Use
  Company Number: FR-ROCHE-2117745

PATIENT
  Age: 14 Year
  Sex: Male
  Weight: 48 kg

DRUGS (1)
  1. XOLAIR [Suspect]
     Active Substance: OMALIZUMAB
     Indication: BRONCHOPULMONARY ASPERGILLOSIS ALLERGIC
     Route: 058

REACTIONS (6)
  - Myalgia [Recovered/Resolved]
  - Stridor [Recovered/Resolved]
  - Arthralgia [Recovered/Resolved]
  - Influenza like illness [Recovered/Resolved]
  - Eosinophilia [Recovered/Resolved]
  - Pyrexia [Recovered/Resolved]

NARRATIVE: CASE EVENT DATE: 20171214
